FAERS Safety Report 12486515 (Version 3)
Quarter: 2016Q3

REPORT INFORMATION
  Report Type: Spontaneous
  Country: US (occurrence: US)
  Receive Date: 20160621
  Receipt Date: 20160815
  Transmission Date: 20161109
  Serious: No
  Sender: FDA-Public Use
  Company Number: US-ELI_LILLY_AND_COMPANY-US201606000433

PATIENT
  Sex: Female

DRUGS (16)
  1. HYDROMORPHONE [Concomitant]
     Active Substance: HYDROMORPHONE
  2. LOSARTAN. [Concomitant]
     Active Substance: LOSARTAN
  3. HUMULIN N [Suspect]
     Active Substance: INSULIN HUMAN
     Indication: TYPE 2 DIABETES MELLITUS
  4. CYCLOBENZAPRINE [Concomitant]
     Active Substance: CYCLOBENZAPRINE
  5. OMEPRAZOL                          /00661201/ [Concomitant]
     Active Substance: OMEPRAZOLE
  6. ALBUTEROL                          /00139502/ [Concomitant]
     Active Substance: ALBUTEROL
  7. CYCLOSPORINE. [Concomitant]
     Active Substance: CYCLOSPORINE
  8. MAGNESIUM                          /07349401/ [Concomitant]
  9. OXYCODON [Concomitant]
     Active Substance: OXYCODONE
  10. CELECOXIB. [Concomitant]
     Active Substance: CELECOXIB
  11. LIRAGLUTIDE [Concomitant]
     Active Substance: LIRAGLUTIDE
  12. FUROSEMIDE. [Concomitant]
     Active Substance: FUROSEMIDE
  13. HUMULIN N [Suspect]
     Active Substance: INSULIN HUMAN
     Indication: GESTATIONAL DIABETES
     Dosage: UNK UNK, UNKNOWN
     Route: 065
  14. AMFETAMINE SULFATE W/DEXAMFETAMINE [Concomitant]
  15. CETIRIZINE [Concomitant]
     Active Substance: CETIRIZINE HYDROCHLORIDE
  16. GABAPENTIN. [Concomitant]
     Active Substance: GABAPENTIN

REACTIONS (1)
  - Maternal exposure during pregnancy [Unknown]
